FAERS Safety Report 20886186 (Version 4)
Quarter: 2023Q1

REPORT INFORMATION
  Report Type: Spontaneous
  Country: AU (occurrence: AU)
  Receive Date: 20220527
  Receipt Date: 20230217
  Transmission Date: 20230417
  Serious: Yes (Hospitalization, Disabling, Other)
  Sender: FDA-Public Use
  Company Number: AU-SA-SAC20220527000137

PATIENT
  Sex: Male

DRUGS (1)
  1. LIBTAYO [Suspect]
     Active Substance: CEMIPLIMAB-RWLC
     Indication: Squamous cell carcinoma
     Dosage: 350 MG
     Route: 042
     Dates: start: 20211203, end: 20220426

REACTIONS (12)
  - Squamous cell carcinoma of skin [Unknown]
  - Necrotic lymphadenopathy [Unknown]
  - Loss of personal independence in daily activities [Unknown]
  - Femoral neck fracture [Unknown]
  - Mobility decreased [Unknown]
  - Fall [Unknown]
  - Lymphadenopathy [Unknown]
  - Pulmonary mass [Unknown]
  - Hyperparathyroidism primary [Unknown]
  - Skin lesion [Recovering/Resolving]
  - COVID-19 [Unknown]
  - Rash [Unknown]
